FAERS Safety Report 8790079 (Version 1)
Quarter: 2012Q4

REPORT INFORMATION
  Report Type: 
  Country: US (occurrence: US)
  Receive Date: 20120917
  Receipt Date: 20120917
  Transmission Date: 20130627
  Serious: Yes (Other)
  Sender: FDA-Public Use
  Company Number: US-PFIZER INC-2012228408

PATIENT
  Sex: Male

DRUGS (1)
  1. PRISTIQ [Suspect]
     Dosage: UNK, 1x/day
     Dates: start: 201207

REACTIONS (5)
  - Depression [Unknown]
  - Confusional state [Unknown]
  - Nervousness [Unknown]
  - Insomnia [Unknown]
  - Malaise [Unknown]
